FAERS Safety Report 10478891 (Version 1)
Quarter: 2014Q3

REPORT INFORMATION
  Report Type: Spontaneous
  Country: BR (occurrence: BR)
  Receive Date: 20140926
  Receipt Date: 20140926
  Transmission Date: 20150326
  Serious: Yes (Other)
  Sender: FDA-Public Use
  Company Number: BR-PFIZER INC-2014262171

PATIENT
  Age: 63 Year
  Sex: Female
  Weight: 82 kg

DRUGS (7)
  1. ATENOLOL. [Concomitant]
     Active Substance: ATENOLOL
     Indication: HYPERTENSION
     Dosage: 1 TABLET, DAILY
     Dates: start: 2009
  2. STILNOX [Concomitant]
     Active Substance: ZOLPIDEM TARTRATE
     Indication: SLEEP DISORDER
     Dosage: 1 DF, UNK
     Dates: start: 2012
  3. NAPRIX [Concomitant]
     Active Substance: RAMIPRIL
     Indication: HYPERTENSION
     Dosage: 1 TABLET, DAILY
     Dates: start: 2013
  4. LIPITOR [Suspect]
     Active Substance: ATORVASTATIN CALCIUM
     Indication: BLOOD CHOLESTEROL INCREASED
     Dosage: 1 TABLET (10 MG), DAILY
  5. OLCADIL [Concomitant]
     Active Substance: CLOXAZOLAM
     Indication: ANXIETY
     Dosage: 1 TABLET (2 MG), DAILY
     Dates: start: 2012
  6. ZOLOFT [Concomitant]
     Active Substance: SERTRALINE HYDROCHLORIDE
     Indication: MAJOR DEPRESSION
     Dosage: 1 TABLET (100), DAILY
     Dates: start: 2012
  7. NEXIUM [Concomitant]
     Active Substance: ESOMEPRAZOLE MAGNESIUM
     Indication: PROPHYLAXIS
     Dosage: 1 TABLET, DAILY
     Dates: start: 20140907

REACTIONS (1)
  - Coronary artery occlusion [Unknown]
